FAERS Safety Report 10149953 (Version 1)
Quarter: 2014Q2

REPORT INFORMATION
  Report Type: Spontaneous
  Country: US (occurrence: None)
  Receive Date: 20140501
  Receipt Date: 20140501
  Transmission Date: 20141212
  Serious: Yes (Death)
  Sender: FDA-Public Use
  Company Number: None

PATIENT
  Age: 54 Year
  Sex: Male

DRUGS (1)
  1. NEULASTA [Suspect]
     Indication: LYMPHOMA
     Dosage: 6 MG EVERY 3 WEEKS SUB-Q
     Route: 058
     Dates: start: 20140313

REACTIONS (1)
  - Death [None]
